FAERS Safety Report 21172452 (Version 1)
Quarter: 2022Q3

REPORT INFORMATION
  Report Type: Spontaneous
  Country: US (occurrence: None)
  Receive Date: 20220803
  Receipt Date: 20220803
  Transmission Date: 20221027
  Serious: Yes (Other)
  Sender: FDA-Public Use
  Company Number: None

PATIENT
  Age: 40 Year
  Sex: Female
  Weight: 82.35 kg

DRUGS (5)
  1. STELARA [Suspect]
     Active Substance: USTEKINUMAB
     Indication: Colitis ulcerative
     Dates: start: 20210624, end: 20220803
  2. ETHINYL ESTRADIOL\NORETHINDRONE ACETATE [Concomitant]
     Active Substance: ETHINYL ESTRADIOL\NORETHINDRONE ACETATE
  3. PREDNISONE [Concomitant]
     Active Substance: PREDNISONE
  4. STELARA [Concomitant]
     Active Substance: USTEKINUMAB
  5. VITAMIN D [Concomitant]
     Active Substance: VITAMIN D NOS

REACTIONS (7)
  - Oedema [None]
  - Peripheral swelling [None]
  - C-reactive protein increased [None]
  - Malaise [None]
  - Eosinophil count abnormal [None]
  - Stomatocytes present [None]
  - Erythema [None]

NARRATIVE: CASE EVENT DATE: 20210715
